FAERS Safety Report 14747640 (Version 1)
Quarter: 2018Q2

REPORT INFORMATION
  Report Type: Spontaneous
  Country: GB (occurrence: GB)
  Receive Date: 20180411
  Receipt Date: 20180411
  Transmission Date: 20180711
  Serious: Yes (Other)
  Sender: FDA-Public Use
  Company Number: GB-MYLANLABS-2018M1022455

PATIENT
  Age: 28 Year
  Sex: Male
  Weight: 69.85 kg

DRUGS (1)
  1. VENLAFAXINE [Suspect]
     Active Substance: VENLAFAXINE HYDROCHLORIDE
     Indication: PRODUCT USED FOR UNKNOWN INDICATION
     Dosage: 225 MG, UNK
     Route: 048

REACTIONS (4)
  - Paraesthesia [Unknown]
  - Hyperhidrosis [Unknown]
  - Vertigo [Unknown]
  - Night sweats [Unknown]
